FAERS Safety Report 4401479-1 (Version None)
Quarter: 2004Q3

REPORT INFORMATION
  Report Type: 
  Country: None (occurrence: None)
  Receive Date: 20040907
  Receipt Date: 20040524
  Transmission Date: 20050211
  Serious: No
  Sender: FDA-Public Use
  Company Number: US-BRISTOL-MYERS SQUIBB COMPANY-12594784

PATIENT
  Age: 66 Year
  Sex: Female
  Weight: 65 kg

DRUGS (8)
  1. COUMADIN [Suspect]
     Indication: ATRIAL FIBRILLATION
     Dosage: BEGAN COUMADIN 4-6 WEEKS AGO 2 MG QD + 10 DAYS AGO INCREASED TO 15 MG QD.
     Route: 048
     Dates: start: 20040101
  2. COZAAR [Concomitant]
  3. ZETIA [Concomitant]
  4. ZOCOR [Concomitant]
  5. HUMIBID [Concomitant]
  6. ZANTAC [Concomitant]
  7. KLONOPIN [Concomitant]
  8. ASPIRIN [Concomitant]

REACTIONS (1)
  - INTERNATIONAL NORMALISED RATIO DECREASED [None]
